FAERS Safety Report 19527216 (Version 1)
Quarter: 2021Q3

REPORT INFORMATION
  Report Type: Spontaneous
  Country: US (occurrence: US)
  Receive Date: 20210713
  Receipt Date: 20210713
  Transmission Date: 20211014
  Serious: Yes (Other)
  Sender: FDA-Public Use
  Company Number: US-TEVA-2021-US-1930914

PATIENT
  Age: 75 Year
  Sex: Female

DRUGS (5)
  1. TAMOXIFEN CITRATE TEVA [Suspect]
     Active Substance: TAMOXIFEN CITRATE
     Route: 065
     Dates: start: 2017
  2. DONG QUI [HERBALS\MINERALS\VITAMINS] [Suspect]
     Active Substance: HERBALS\MINERALS\VITAMINS
     Route: 065
  3. TRAZODONE HYDROCHLORIDE TEVA [Suspect]
     Active Substance: TRAZODONE HYDROCHLORIDE
     Route: 065
     Dates: start: 20201119, end: 20210703
  4. HUMULUS LUPULUS (HOPS) FLOWER EXTRACT [Suspect]
     Active Substance: HOPS
     Route: 065
  5. TAMOXIFEN CITRATE TEVA [Suspect]
     Active Substance: TAMOXIFEN CITRATE
     Route: 065

REACTIONS (8)
  - Bone density decreased [Not Recovered/Not Resolved]
  - Dyspnoea [Recovered/Resolved]
  - Acne [Unknown]
  - Foot fracture [Unknown]
  - Cataract [Not Recovered/Not Resolved]
  - Depression [Recovered/Resolved]
  - Osteopenia [Not Recovered/Not Resolved]
  - Palpitations [Recovered/Resolved]
